FAERS Safety Report 4448584-1 (Version None)
Quarter: 2004Q3

REPORT INFORMATION
  Report Type: 
  Country: None (occurrence: None)
  Receive Date: 20040909
  Receipt Date: 20040826
  Transmission Date: 20050211
  Serious: Yes (Hospitalization)
  Sender: FDA-Public Use
  Company Number: JP_040403031

PATIENT
  Age: 73 Year
  Sex: Male
  Weight: 36 kg

DRUGS (2)
  1. GEMZAR [Suspect]
     Indication: LUNG ADENOCARCINOMA
     Dosage: 1000 MG OTHER
     Route: 050
     Dates: start: 20040108, end: 20040406
  2. TAXOTERE [Concomitant]

REACTIONS (1)
  - INTERSTITIAL LUNG DISEASE [None]
